FAERS Safety Report 20540929 (Version 1)
Quarter: 2022Q1

REPORT INFORMATION
  Report Type: Spontaneous
  Country: CN (occurrence: CN)
  Receive Date: 20220302
  Receipt Date: 20220302
  Transmission Date: 20220424
  Serious: Yes (Other)
  Sender: FDA-Public Use
  Company Number: CN-BAYER-2021A226462

PATIENT
  Age: 35 Year
  Sex: Female

DRUGS (19)
  1. XARELTO [Suspect]
     Active Substance: RIVAROXABAN
     Indication: Deep vein thrombosis
     Dosage: 15 MG, BID
     Route: 048
     Dates: start: 20210930
  2. ENOXAPARIN [Concomitant]
     Active Substance: ENOXAPARIN
     Dosage: 1 DF, BID
     Dates: start: 20210926, end: 20210928
  3. FRAGMIN [Concomitant]
     Active Substance: DALTEPARIN SODIUM
     Dosage: UNK
     Dates: start: 20210928, end: 20210930
  4. HEPARIN [Concomitant]
     Active Substance: HEPARIN SODIUM
     Dosage: 2500 U
     Route: 037
     Dates: start: 20210926, end: 20210927
  5. HEPARIN [Concomitant]
     Active Substance: HEPARIN SODIUM
     Dosage: 5000 U
     Route: 037
     Dates: start: 20210928, end: 20210930
  6. UROKINASE [Concomitant]
     Active Substance: UROKINASE
     Dosage: 7500000 DF
     Route: 026
     Dates: start: 20210928, end: 20211001
  7. MONTELUKAST [Concomitant]
     Active Substance: MONTELUKAST SODIUM
     Dosage: UNK
     Dates: start: 20210928
  8. IRON [Concomitant]
     Active Substance: IRON
     Dosage: UNK
     Dates: start: 20210929
  9. SYMBICORT [Concomitant]
     Active Substance: BUDESONIDE\FORMOTEROL FUMARATE DIHYDRATE
     Dosage: UNK
     Dates: start: 20210929
  10. CETIRIZINE [Concomitant]
     Active Substance: CETIRIZINE HYDROCHLORIDE
     Dosage: UNK
     Dates: start: 20210929
  11. RABEPRAZOLE [Concomitant]
     Active Substance: RABEPRAZOLE
     Dosage: UNK
     Dates: start: 20210928
  12. VITAMIN B6 [Concomitant]
     Active Substance: PYRIDOXINE HYDROCHLORIDE
     Dosage: UNK
     Dates: start: 20210928, end: 20210928
  13. VITAMIN B6 [Concomitant]
     Active Substance: PYRIDOXINE HYDROCHLORIDE
     Dosage: UNK
     Dates: start: 20211001
  14. SODIUM BICARBONATE [Concomitant]
     Active Substance: SODIUM BICARBONATE
     Dosage: UNK
     Dates: start: 20211001
  15. IODIXANOL [Concomitant]
     Active Substance: IODIXANOL
     Dosage: UNK
     Dates: start: 20210926, end: 20210926
  16. IODIXANOL [Concomitant]
     Active Substance: IODIXANOL
     Dosage: UNK
     Dates: start: 20210927, end: 20210927
  17. IODIXANOL [Concomitant]
     Active Substance: IODIXANOL
     Dosage: UNK
     Dates: start: 20210930, end: 20210930
  18. AMINO ACIDS\CARBOHYDRATES\MINERALS\SOYBEAN OIL\VITAMINS [Concomitant]
     Active Substance: AMINO ACIDS\CARBOHYDRATES\MINERALS\SOYBEAN OIL\VITAMINS
  19. HUMAN PLASMA [Concomitant]
     Active Substance: HUMAN PLASMA

REACTIONS (4)
  - Transaminases increased [Unknown]
  - Contraindicated product administered [Unknown]
  - Off label use [Unknown]
  - Maternal exposure during pregnancy [Unknown]

NARRATIVE: CASE EVENT DATE: 20210930
